FAERS Safety Report 18170050 (Version 5)
Quarter: 2022Q1

REPORT INFORMATION
  Report Type: Report from Study
  Country: US (occurrence: US)
  Receive Date: 20200819
  Receipt Date: 20220329
  Transmission Date: 20220423
  Serious: Yes (Hospitalization)
  Sender: FDA-Public Use
  Company Number: US-SHIRE-US202026263

PATIENT
  Age: 59 Year
  Sex: Female
  Weight: 63 kg

DRUGS (37)
  1. LANADELUMAB [Suspect]
     Active Substance: LANADELUMAB
     Indication: Immune system disorder
     Dosage: 300 MILLIGRAM, Q2WEEKS
     Route: 058
     Dates: start: 20200505
  2. LANADELUMAB [Suspect]
     Active Substance: LANADELUMAB
     Dosage: 300 MILLIGRAM, Q2WEEKS
     Route: 058
     Dates: start: 20180827
  3. KALBITOR [Suspect]
     Active Substance: ECALLANTIDE
     Indication: Immune system disorder
     Dosage: 30 MILLIGRAM
     Route: 058
     Dates: start: 20180222
  4. KALBITOR [Suspect]
     Active Substance: ECALLANTIDE
     Dosage: 30 MILLIGRAM
     Route: 065
     Dates: start: 20170727
  5. KALBITOR [Suspect]
     Active Substance: ECALLANTIDE
     Dosage: 30 MILLIGRAM
     Route: 058
     Dates: start: 20150725
  6. KALBITOR [Suspect]
     Active Substance: ECALLANTIDE
     Dosage: 30 MILLIGRAM
     Route: 058
     Dates: start: 20181214
  7. FIRAZYR [Suspect]
     Active Substance: ICATIBANT ACETATE
     Indication: Product used for unknown indication
     Dosage: 30 MILLIGRAM, PRN
     Route: 058
     Dates: start: 20160527
  8. FIRAZYR [Suspect]
     Active Substance: ICATIBANT ACETATE
     Indication: Product used for unknown indication
     Dosage: 30 MILLIGRAM, PRN
     Route: 058
     Dates: start: 20160527
  9. RUCONEST [Suspect]
     Active Substance: HUMAN C1-ESTERASE INHIBITOR
     Indication: Immune system disorder
     Dosage: 4200 INTERNATIONAL UNIT
     Route: 042
     Dates: start: 20190105
  10. ZYRTEC [Concomitant]
     Active Substance: CETIRIZINE HYDROCHLORIDE
     Indication: Product used for unknown indication
     Route: 065
  11. ONDANSETRON [Concomitant]
     Active Substance: ONDANSETRON
     Route: 065
  12. ACETAMINOPHEN [Concomitant]
     Active Substance: ACETAMINOPHEN
     Route: 065
  13. FLUTICASONE PROPIONATE [Concomitant]
     Active Substance: FLUTICASONE PROPIONATE
     Route: 065
  14. BERINERT [Concomitant]
     Active Substance: HUMAN C1-ESTERASE INHIBITOR
     Route: 065
  15. HEPARIN [Concomitant]
     Active Substance: HEPARIN SODIUM
  16. SODIUM CHLORIDE [Concomitant]
     Active Substance: SODIUM CHLORIDE
  17. STERILE WATER [Concomitant]
     Active Substance: WATER
  18. EPINEPHRINE [Concomitant]
     Active Substance: EPINEPHRINE
  19. PROPRANOLOL HYDROCHLORIDE [Concomitant]
     Active Substance: PROPRANOLOL HYDROCHLORIDE
  20. ESTRACE [Concomitant]
     Active Substance: ESTRADIOL
  21. LOSARTAN [Concomitant]
     Active Substance: LOSARTAN
  22. HYDROMORPHONE [Concomitant]
     Active Substance: HYDROMORPHONE
  23. TRANEXAMIC ACID [Concomitant]
     Active Substance: TRANEXAMIC ACID
  24. TRAZODONE [Concomitant]
     Active Substance: TRAZODONE HYDROCHLORIDE
  25. FLONASE [Concomitant]
     Active Substance: FLUTICASONE PROPIONATE
  26. VITAMINS NOS [Concomitant]
     Active Substance: VITAMINS
  27. BIOTIN [Concomitant]
     Active Substance: BIOTIN
  28. ADENOSINE [Concomitant]
     Active Substance: ADENOSINE
  29. GLUCOSAMINE [Concomitant]
     Active Substance: GLUCOSAMINE
  30. VITAMIN C [Concomitant]
     Active Substance: ASCORBIC ACID
  31. OMEPRAZOLE [Concomitant]
     Active Substance: OMEPRAZOLE
  32. WELLBUTRIN [Concomitant]
     Active Substance: BUPROPION HYDROCHLORIDE
  33. FENOFIBRATE [Concomitant]
     Active Substance: FENOFIBRATE
  34. LEVOTHYROXINE [Concomitant]
     Active Substance: LEVOTHYROXINE
  35. VENLAFAXINE [Concomitant]
     Active Substance: VENLAFAXINE HYDROCHLORIDE
  36. ELETRIPTAN [Concomitant]
     Active Substance: ELETRIPTAN
  37. GABAPENTIN [Concomitant]
     Active Substance: GABAPENTIN

REACTIONS (5)
  - Hereditary angioedema [Not Recovered/Not Resolved]
  - Stress [Unknown]
  - Migraine [Recovered/Resolved]
  - Drug ineffective [Unknown]
  - Injection site pain [Unknown]

NARRATIVE: CASE EVENT DATE: 20200812
